FAERS Safety Report 7149369-8 (Version None)
Quarter: 2010Q4

REPORT INFORMATION
  Report Type: 
  Country: None (occurrence: None)
  Receive Date: 20101209
  Receipt Date: 20101112
  Transmission Date: 20110411
  Serious: No
  Sender: FDA-Public Use
  Company Number: US-KINGPHARMUSA00001-K201001392

PATIENT
  Sex: Female

DRUGS (4)
  1. EMBEDA [Suspect]
     Indication: SPINAL DISORDER
     Dosage: 100 MG, BID
     Route: 048
     Dates: start: 20100101
  2. EMBEDA [Suspect]
     Indication: BONE PAIN
  3. NEXIUM [Concomitant]
     Indication: ABDOMINAL DISCOMFORT
  4. OXYCODONE HCL [Concomitant]
     Indication: BREAKTHROUGH PAIN
     Dosage: EVERY 6 HOUR PRN

REACTIONS (14)
  - ABDOMINAL DISTENSION [None]
  - ANXIETY [None]
  - CHILLS [None]
  - DECREASED APPETITE [None]
  - DEPRESSION [None]
  - DRUG INEFFECTIVE [None]
  - FEELING ABNORMAL [None]
  - HEADACHE [None]
  - HOT FLUSH [None]
  - HYPERHIDROSIS [None]
  - IRRITABILITY [None]
  - MUSCLE SPASMS [None]
  - NAUSEA [None]
  - WEIGHT DECREASED [None]
